FAERS Safety Report 5743887-2 (Version None)
Quarter: 2008Q2

REPORT INFORMATION
  Report Type: 
  Country: None (occurrence: None)
  Receive Date: 20080520
  Receipt Date: 20080512
  Transmission Date: 20081010
  Serious: Yes (Hospitalization)
  Sender: FDA-Public Use
  Company Number: FR-ELI_LILLY_AND_COMPANY-FR200805002004

PATIENT
  Sex: Female

DRUGS (7)
  1. ALIMTA [Suspect]
     Indication: MESOTHELIOMA MALIGNANT
     Dosage: 500 MG/M2, UNKNOWN
     Route: 042
     Dates: start: 20060101, end: 20070801
  2. CISPLATIN [Concomitant]
     Indication: MESOTHELIOMA MALIGNANT
     Dosage: 175 MG/M2, UNKNOWN
     Route: 042
     Dates: start: 20070330, end: 20070722
  3. FUROSEMIDE [Concomitant]
     Dosage: 40 MG, DAILY (1/D)
     Route: 048
  4. PREVISCAN [Concomitant]
     Dosage: 0.25 D/F, UNKNOWN
     Route: 048
  5. SYMBICORT [Concomitant]
     Dosage: 200 UG, DAILY (1/D)
     Route: 055
  6. PERINDOPRIL ERBUMINE [Concomitant]
     Dosage: 2 MG, DAILY (1/D)
     Route: 048
  7. CARDENSIEL [Concomitant]
     Dosage: 1.25 MG, DAILY (1/D)
     Route: 048

REACTIONS (4)
  - CARDIAC FAILURE [None]
  - CONGESTIVE CARDIOMYOPATHY [None]
  - HOSPITALISATION [None]
  - RENAL FAILURE CHRONIC [None]
